FAERS Safety Report 17638452 (Version 1)
Quarter: 2020Q2

REPORT INFORMATION
  Report Type: Spontaneous
  Country: IT (occurrence: IT)
  Receive Date: 20200407
  Receipt Date: 20200407
  Transmission Date: 20200713
  Serious: Yes (Other)
  Sender: FDA-Public Use
  Company Number: IT-MYLANLABS-2020M1034979

PATIENT
  Age: 61 Year
  Sex: Male

DRUGS (2)
  1. OXALIPLATIN. [Concomitant]
     Active Substance: OXALIPLATIN
     Indication: ADENOCARCINOMA GASTRIC
     Dosage: 100 MG/MQ G1 EVERY 21 DAYS FOR 6 MONTHS
     Route: 065
  2. CAPECITABINE MYLAN [Suspect]
     Active Substance: CAPECITABINE
     Indication: ADENOCARCINOMA GASTRIC
     Dosage: 1700 MG/MQ G2-15 EVERY 21 DAYS FOR 6 MONTHS
     Route: 065

REACTIONS (1)
  - Metastatic malignant melanoma [Unknown]
